FAERS Safety Report 5475411-6 (Version None)
Quarter: 2007Q4

REPORT INFORMATION
  Report Type: 
  Country: None (occurrence: None)
  Receive Date: 20071003
  Receipt Date: 20070925
  Transmission Date: 20080405
  Serious: Yes (Other)
  Sender: FDA-Public Use
  Company Number: PHEH2007US12032

PATIENT
  Sex: Female

DRUGS (3)
  1. HYDROCHLOROTHIAZIDE [Suspect]
     Route: 048
  2. SULAR [Suspect]
  3. LOTENSIN HCT [Suspect]
     Dosage: 10 MG BENA/12.5 MG HCT, UNK
     Route: 048
     Dates: start: 20000101

REACTIONS (9)
  - ABDOMINAL PAIN UPPER [None]
  - DIZZINESS [None]
  - FALL [None]
  - FLUSHING [None]
  - HEADACHE [None]
  - LOSS OF CONSCIOUSNESS [None]
  - MUSCLE SPASMS [None]
  - PAIN IN EXTREMITY [None]
  - VOMITING [None]
